FAERS Safety Report 23837214 (Version 1)
Quarter: 2024Q2

REPORT INFORMATION
  Report Type: Spontaneous
  Country: DE (occurrence: DE)
  Receive Date: 20240509
  Receipt Date: 20240509
  Transmission Date: 20240716
  Serious: Yes (Other)
  Sender: FDA-Public Use
  Company Number: DE-SUN PHARMACEUTICAL INDUSTRIES LTD-2024RR-445691

PATIENT
  Age: 6 Year
  Sex: Male

DRUGS (12)
  1. LEVETIRACETAM [Suspect]
     Active Substance: LEVETIRACETAM
     Indication: Seizure
     Dosage: 40 MILLIGRAM/KILOGRAM, DAILY
     Route: 065
  2. LEVETIRACETAM [Suspect]
     Active Substance: LEVETIRACETAM
     Dosage: 60 MILLIGRAM/KILOGRAM, DAILY
     Route: 040
  3. MIDAZOLAM [Suspect]
     Active Substance: MIDAZOLAM
     Indication: Seizure
     Dosage: 5 MILLIGRAM
     Route: 065
  4. LACOSAMIDE [Suspect]
     Active Substance: LACOSAMIDE
     Indication: Seizure
     Dosage: 2 MILLIGRAM/KILOGRAM
     Route: 040
  5. OXCARBAZEPINE [Suspect]
     Active Substance: OXCARBAZEPINE
     Indication: Seizure
     Dosage: 0.25 MG/KG/DAY
     Route: 065
  6. CLOBAZAM [Suspect]
     Active Substance: CLOBAZAM
     Indication: Seizure
     Dosage: UNK
     Route: 065
  7. FOSPHENYTOIN [Suspect]
     Active Substance: FOSPHENYTOIN
     Indication: Seizure
     Dosage: UNK
     Route: 040
  8. PHENOBARBITAL [Suspect]
     Active Substance: PHENOBARBITAL
     Indication: Seizure
     Dosage: 10 MILLIGRAM/KILOGRAM, DAILY
     Route: 040
  9. PHENOBARBITAL [Suspect]
     Active Substance: PHENOBARBITAL
     Dosage: 10 MILLIGRAM, DAILY
     Route: 048
  10. PHENOBARBITAL [Suspect]
     Active Substance: PHENOBARBITAL
     Dosage: 5 MILLIGRAM, DAILY
     Route: 048
  11. LORAZEPAM [Suspect]
     Active Substance: LORAZEPAM
     Indication: Seizure
     Dosage: 0.1 MILLIGRAM/KILOGRAM
     Route: 040
  12. CLONAZEPAM [Suspect]
     Active Substance: CLONAZEPAM
     Indication: Seizure
     Dosage: 0.06 MILLIGRAM/KILOGRAM
     Route: 040

REACTIONS (5)
  - Drug ineffective [Unknown]
  - Muscle spasms [Unknown]
  - Rash [Unknown]
  - Hepatic enzyme increased [Unknown]
  - Bradypnoea [Unknown]
